FAERS Safety Report 17152444 (Version 1)
Quarter: 2019Q4

REPORT INFORMATION
  Report Type: Spontaneous
  Country: US (occurrence: US)
  Receive Date: 20191213
  Receipt Date: 20191213
  Transmission Date: 20200122
  Serious: Yes (Life-Threatening, Hospitalization, Other)
  Sender: FDA-Public Use
  Company Number: US-AMGEN-USASP2019206669

PATIENT
  Sex: Male

DRUGS (4)
  1. VALSARTAN. [Concomitant]
     Active Substance: VALSARTAN
     Indication: PRODUCT USED FOR UNKNOWN INDICATION
     Dosage: UNK
     Route: 065
  2. AIMOVIG [Suspect]
     Active Substance: ERENUMAB-AOOE
     Indication: HEADACHE
     Dosage: UNK
     Route: 065
  3. NORTHERA [Concomitant]
     Active Substance: DROXIDOPA
     Dosage: 1800 MG + 300 MG
  4. CYMBALTA [Concomitant]
     Active Substance: DULOXETINE HYDROCHLORIDE

REACTIONS (7)
  - Palpitations [Unknown]
  - Pain [Unknown]
  - Cerebrovascular accident [Unknown]
  - Somnolence [Unknown]
  - Insomnia [Unknown]
  - Blood pressure increased [Not Recovered/Not Resolved]
  - Tremor [Unknown]
